FAERS Safety Report 8907534 (Version 1)
Quarter: 2012Q4

REPORT INFORMATION
  Report Type: 
  Country: US (occurrence: US)
  Receive Date: 20121113
  Receipt Date: 20121113
  Transmission Date: 20130627
  Serious: No
  Sender: FDA-Public Use
  Company Number: US-AMGEN-USASP2012010402

PATIENT
  Age: 65 Year
  Sex: Female
  Weight: 76.64 kg

DRUGS (9)
  1. ENBREL [Suspect]
     Indication: PRODUCT USED FOR UNKNOWN INDICATION
     Dosage: 25 mg, 2 times/wk
     Route: 058
  2. PREDNISONE [Concomitant]
     Dosage: UNK
  3. PROTONIX [Concomitant]
     Dosage: 40 mg, UNK
  4. LOMOTIL [Concomitant]
     Dosage: 2.5 mg, UNK
  5. PREMPRO [Concomitant]
     Dosage: UNK
  6. WELLBUTRIN [Concomitant]
     Dosage: 75 mg, UNK
  7. POTASSIUM [Concomitant]
     Dosage: 75 mg, UNK
  8. CALCIUM 500+D [Concomitant]
     Dosage: UNK
  9. D3 [Concomitant]
     Dosage: UNK

REACTIONS (2)
  - Contusion [Unknown]
  - Injection site bruising [Unknown]
